FAERS Safety Report 7826742-3 (Version None)
Quarter: 2011Q4

REPORT INFORMATION
  Report Type: 
  Country: None (occurrence: None)
  Receive Date: 20111018
  Receipt Date: 20111003
  Transmission Date: 20120403
  Serious: Yes (Death, Life-Threatening, Hospitalization)
  Sender: FDA-Public Use
  Company Number: OMPQ-NO-1110S-1172

PATIENT
  Age: 37 Year
  Sex: Male
  Weight: 56 kg

DRUGS (3)
  1. ANTIMALARIAL UNSPECIFIED [Concomitant]
  2. ANTIBIOTICS UNSPECIFIED (CHLORAMPHENICOL) [Concomitant]
  3. OMNOPAQUE (IOHEXOL) [Suspect]
     Indication: CHEST PAIN
     Dosage: 95 ML, SINGLE DOSE, INTRAVENOUS
     Route: 042
     Dates: start: 20110927, end: 20110927

REACTIONS (3)
  - CARDIAC FAILURE CONGESTIVE [None]
  - BLOOD PRESSURE DECREASED [None]
  - DYSPNOEA [None]
